FAERS Safety Report 19468956 (Version 1)
Quarter: 2021Q2

REPORT INFORMATION
  Report Type: Spontaneous
  Country: JP (occurrence: JP)
  Receive Date: 20210628
  Receipt Date: 20210628
  Transmission Date: 20210717
  Serious: Yes (Other)
  Sender: FDA-Public Use
  Company Number: JP-TEVA-2021-JP-1927275

PATIENT
  Age: 65 Year
  Sex: Female
  Weight: 47.5 kg

DRUGS (2)
  1. RISEDRONATE [Suspect]
     Active Substance: RISEDRONATE SODIUM
     Indication: OSTEOPOROSIS
     Route: 048
  2. CELECOXIB. [Suspect]
     Active Substance: CELECOXIB
     Indication: ARTHRALGIA
     Dosage: 200 MILLIGRAM DAILY;
     Route: 065

REACTIONS (3)
  - Drug ineffective [Unknown]
  - Atypical fracture [Recovered/Resolved]
  - Tibia fracture [Recovered/Resolved]
